FAERS Safety Report 17784973 (Version 1)
Quarter: 2020Q2

REPORT INFORMATION
  Report Type: Spontaneous
  Country: CN (occurrence: CN)
  Receive Date: 20200514
  Receipt Date: 20200514
  Transmission Date: 20200714
  Serious: Yes (Hospitalization, Other)
  Sender: FDA-Public Use
  Company Number: CN-PFIZER INC-2020190629

PATIENT
  Age: 16 Year
  Sex: Male
  Weight: 53 kg

DRUGS (2)
  1. METHOTREXATE. [Suspect]
     Active Substance: METHOTREXATE
     Indication: NEOPLASM
     Dosage: 1.5 G, 1X/DAY
     Route: 041
     Dates: start: 20200306, end: 20200306
  2. CYTARABINE. [Suspect]
     Active Substance: CYTARABINE
     Indication: NEOPLASM
     Dosage: 3 G, 2X/DAY (EVERY 12 HOURS)
     Route: 041
     Dates: start: 20200309, end: 20200310

REACTIONS (19)
  - Bone marrow failure [Recovering/Resolving]
  - Asthenia [Recovering/Resolving]
  - Skin haemorrhage [Recovering/Resolving]
  - White blood cell count decreased [Recovering/Resolving]
  - White blood cell count increased [Recovering/Resolving]
  - Epistaxis [Recovering/Resolving]
  - Oral blood blister [Recovering/Resolving]
  - Pyrexia [Recovering/Resolving]
  - Haemorrhage [Recovering/Resolving]
  - Granulocyte count decreased [Recovering/Resolving]
  - Pallor [Recovering/Resolving]
  - Haemoglobin decreased [Recovering/Resolving]
  - Neutrophil count increased [Recovering/Resolving]
  - Infection [Recovering/Resolving]
  - Chills [Recovering/Resolving]
  - Neutrophil count decreased [Recovering/Resolving]
  - Platelet count decreased [Recovering/Resolving]
  - Anaemia [Recovering/Resolving]
  - C-reactive protein increased [Recovering/Resolving]

NARRATIVE: CASE EVENT DATE: 20200317
